FAERS Safety Report 5652064-5 (Version None)
Quarter: 2008Q1

REPORT INFORMATION
  Report Type: 
  Country: None (occurrence: None)
  Receive Date: 20080305
  Receipt Date: 20080227
  Transmission Date: 20080703
  Serious: Yes (Hospitalization)
  Sender: FDA-Public Use
  Company Number: FR-PFIZER INC-2008018496

PATIENT
  Sex: Female

DRUGS (9)
  1. ZOLOFT [Suspect]
     Route: 048
     Dates: start: 20050101, end: 20070219
  2. XANAX [Suspect]
     Route: 048
     Dates: start: 20060101, end: 20070219
  3. IMOVANE [Suspect]
     Dosage: DAILY DOSE:7.5MG
     Route: 048
     Dates: start: 20070102, end: 20070219
  4. GALANTAMINE HYDROBROMIDE [Concomitant]
     Dosage: DAILY DOSE:24MG
     Route: 048
  5. MEMANTINE HCL [Concomitant]
  6. TRINITRINE [Concomitant]
  7. CANDESARTAN CILEXETIL [Concomitant]
  8. ISRADIPINE [Concomitant]
  9. PRAVASTATIN [Concomitant]

REACTIONS (3)
  - AGITATION [None]
  - DEHYDRATION [None]
  - HALLUCINATION [None]
